FAERS Safety Report 6848952-4 (Version None)
Quarter: 2010Q3

REPORT INFORMATION
  Report Type: 
  Country: None (occurrence: None)
  Receive Date: 20100716
  Receipt Date: 20070925
  Transmission Date: 20110219
  Serious: No
  Sender: FDA-Public Use
  Company Number: US-PFIZER INC-2007081859

PATIENT
  Sex: Female

DRUGS (10)
  1. CHANTIX [Suspect]
     Indication: SMOKING CESSATION THERAPY
     Route: 048
     Dates: start: 20070917
  2. NOVOLOG [Concomitant]
  3. METOPROLOL [Concomitant]
  4. COZAAR [Concomitant]
  5. GEMFIBROZIL [Concomitant]
  6. SKELAXIN [Concomitant]
  7. PERCOCET [Concomitant]
  8. LANTUS [Concomitant]
  9. PROZAC [Concomitant]
  10. KLONOPIN [Concomitant]

REACTIONS (1)
  - DYSGEUSIA [None]
